FAERS Safety Report 12272302 (Version 3)
Quarter: 2016Q2

REPORT INFORMATION
  Report Type: Spontaneous
  Country: US (occurrence: US)
  Receive Date: 20160415
  Receipt Date: 20160620
  Transmission Date: 20160815
  Serious: Yes (Death, Hospitalization)
  Sender: FDA-Public Use
  Company Number: US-TAIHO ONCOLOGY INC-EU-2016-00453

PATIENT
  Age: 62 Year
  Sex: Male

DRUGS (5)
  1. LONSURF [Suspect]
     Active Substance: TIPIRACIL HYDROCHLORIDE\TRIFLURIDINE
     Indication: COLON CANCER STAGE IV
     Route: 048
     Dates: start: 20160111, end: 20160210
  2. AVASTIN [Concomitant]
     Active Substance: BEVACIZUMAB
     Dosage: NI
  3. CAMPTOSAR [Concomitant]
     Active Substance: IRINOTECAN HYDROCHLORIDE
     Dosage: NI
  4. LEUCO [Concomitant]
     Active Substance: LEUCOVORIN
     Dosage: NI
  5. OXALIPLATIN. [Concomitant]
     Active Substance: OXALIPLATIN
     Dosage: NI

REACTIONS (3)
  - Hyperbilirubinaemia [Unknown]
  - Fatigue [Unknown]
  - Disease progression [Fatal]

NARRATIVE: CASE EVENT DATE: 20160210
